FAERS Safety Report 5282008-X (Version None)
Quarter: 2007Q1

REPORT INFORMATION
  Report Type: 
  Country: None (occurrence: None)
  Receive Date: 20070330
  Receipt Date: 20070322
  Transmission Date: 20070707
  Serious: Yes (Hospitalization)
  Sender: FDA-Public Use
  Company Number: US-ABBOTT-97P-163-0049574-00

PATIENT
  Sex: Male

DRUGS (6)
  1. RITONAVIR [Suspect]
     Indication: HIV INFECTION
     Route: 048
     Dates: start: 19960101, end: 19960101
  2. RITONAVIR [Suspect]
  3. RITONAVIR [Suspect]
  4. PROCARDIA [Concomitant]
     Indication: DRUG USE FOR UNKNOWN INDICATION
     Dosage: NOT REPORTED
  5. ZIDOVUDINE [Concomitant]
     Indication: DRUG USE FOR UNKNOWN INDICATION
     Dosage: NOT REPORTED
  6. LAMIVUDINE [Concomitant]
     Indication: DRUG USE FOR UNKNOWN INDICATION
     Dosage: NOT REPORTED

REACTIONS (7)
  - ANOREXIA [None]
  - BLOOD CREATININE INCREASED [None]
  - CHILLS [None]
  - CONDITION AGGRAVATED [None]
  - FLUID OVERLOAD [None]
  - NAUSEA [None]
  - RENAL IMPAIRMENT [None]
